FAERS Safety Report 5163005-1 (Version None)
Quarter: 2006Q4

REPORT INFORMATION
  Report Type: 
  Country: None (occurrence: None)
  Receive Date: 20061201
  Receipt Date: 20061122
  Transmission Date: 20070319
  Serious: Yes (Other)
  Sender: FDA-Public Use
  Company Number: PHBS2006SE18141

PATIENT
  Age: 58 Year
  Sex: Female

DRUGS (4)
  1. ZOMETA [Suspect]
     Indication: METASTASES TO BONE
     Route: 065
     Dates: start: 20040101
  2. OXYNORM [Concomitant]
     Route: 048
  3. SEROXAT [Concomitant]
     Route: 048
  4. XELODA [Concomitant]
     Route: 048

REACTIONS (5)
  - ABSCESS ORAL [None]
  - OSTEONECROSIS [None]
  - PAIN IN JAW [None]
  - SWELLING [None]
  - TOOTH EXTRACTION [None]
